FAERS Safety Report 4578290-4 (Version None)
Quarter: 2005Q1

REPORT INFORMATION
  Report Type: 
  Country: None (occurrence: None)
  Receive Date: 20050209
  Receipt Date: 20050128
  Transmission Date: 20050727
  Serious: Yes (Hospitalization)
  Sender: FDA-Public Use
  Company Number: 2005021244

PATIENT
  Sex: Female

DRUGS (5)
  1. ROGAINE [Suspect]
     Indication: ALOPECIA
     Dosage: 1 ML BID TOPICAL
     Route: 061
     Dates: start: 20040101, end: 20040101
  2. ATORVASTAIN (ATORVASTATIN) [Concomitant]
  3. RANITIDINE HYDROCHLORIDE [Concomitant]
  4. ACETYLSALICYLIC ACID SRT [Concomitant]
  5. MECLOZINE HYDROCHLORIDE (MECLOZINE HYDROCHLORIDE) [Concomitant]

REACTIONS (5)
  - CHEST PAIN [None]
  - DRUG INEFFECTIVE [None]
  - DYSPNOEA [None]
  - FEELING ABNORMAL [None]
  - HEART RATE INCREASED [None]
